FAERS Safety Report 6648899-2 (Version None)
Quarter: 2010Q1

REPORT INFORMATION
  Report Type: 
  Country: None (occurrence: None)
  Receive Date: 20100319
  Receipt Date: 20100309
  Transmission Date: 20100710
  Serious: Yes (Hospitalization)
  Sender: FDA-Public Use
  Company Number: A-US2010-33625

PATIENT
  Age: 68 Year
  Sex: Male

DRUGS (4)
  1. TRACLEER [Suspect]
     Indication: PULMONARY ARTERIAL HYPERTENSION
     Dosage: 125 MG, BID, ORAL
     Route: 048
     Dates: start: 20080513
  2. VENTAVIS [Concomitant]
  3. COUMADIN [Concomitant]
  4. FLONASE [Concomitant]

REACTIONS (3)
  - ATRIAL FIBRILLATION [None]
  - FLUID RETENTION [None]
  - PNEUMONIA ASPIRATION [None]
